FAERS Safety Report 6861020-0 (Version None)
Quarter: 2010Q3

REPORT INFORMATION
  Report Type: 
  Country: None (occurrence: None)
  Receive Date: 20100720
  Receipt Date: 20100713
  Transmission Date: 20110219
  Serious: Yes (Congenital Anomaly, Other)
  Sender: FDA-Public Use
  Company Number: GB-JNJFOC-20100701393

PATIENT
  Sex: Male
  Weight: 3.84 kg

DRUGS (9)
  1. ACETAMINOPHEN AND CODEINE PHOSPHATE [Suspect]
     Indication: DRUG EXPOSURE DURING PREGNANCY
     Dosage: DOSE OF 2DF
     Route: 064
  2. IBUPROFEN [Suspect]
     Route: 064
  3. IBUPROFEN [Suspect]
     Indication: DRUG EXPOSURE DURING PREGNANCY
     Route: 064
  4. PARACETAMOL [Suspect]
     Route: 064
  5. PARACETAMOL [Suspect]
     Indication: DRUG EXPOSURE DURING PREGNANCY
     Route: 064
  6. ARAVA [Suspect]
     Indication: DRUG EXPOSURE DURING PREGNANCY
     Route: 064
  7. ARAVA [Suspect]
     Route: 064
  8. AUGMENTIN '125' [Suspect]
     Indication: DRUG EXPOSURE DURING PREGNANCY
     Route: 064
  9. UNKNOWN MEDICATION [Suspect]
     Indication: DRUG EXPOSURE DURING PREGNANCY
     Route: 064

REACTIONS (3)
  - ERB'S PALSY [None]
  - FOETAL DISTRESS SYNDROME [None]
  - SHOULDER DYSTOCIA [None]
